FAERS Safety Report 10453793 (Version 1)
Quarter: 2014Q3

REPORT INFORMATION
  Report Type: Spontaneous
  Country: US (occurrence: US)
  Receive Date: 20140915
  Receipt Date: 20140915
  Transmission Date: 20150326
  Serious: No
  Sender: FDA-Public Use
  Company Number: US-BRISTOL-MYERS SQUIBB COMPANY-21279724

PATIENT
  Sex: Female

DRUGS (1)
  1. ELIQUIS [Suspect]
     Active Substance: APIXABAN
     Dosage: I DOSAGE=1 SHOT?EARLIER 2 SHOTS PER DAY.?ON THERAPY FOR 3 AND HALF YEARS.

REACTIONS (1)
  - Skin discolouration [Unknown]
